FAERS Safety Report 8967108 (Version 2)
Quarter: 2012Q4

REPORT INFORMATION
  Report Type: 
  Country: AR (occurrence: AR)
  Receive Date: 20121217
  Receipt Date: 20121218
  Transmission Date: 20130627
  Serious: Yes (Other)
  Sender: FDA-Public Use
  Company Number: PHHY2012AR115385

PATIENT
  Sex: Male

DRUGS (1)
  1. EXFORGE [Suspect]
     Indication: HYPERTENSION
     Dosage: 1 DF daily (valsartan 160mg and amlodipine 5mg) daily
     Route: 048
     Dates: start: 2010

REACTIONS (2)
  - Renal cancer [Not Recovered/Not Resolved]
  - Hypertension [Not Recovered/Not Resolved]
